FAERS Safety Report 9345878 (Version 1)
Quarter: 2013Q2

REPORT INFORMATION
  Report Type: Spontaneous
  Country: GB (occurrence: GB)
  Receive Date: 20130613
  Receipt Date: 20130613
  Transmission Date: 20140414
  Serious: Yes (Disabling, Other)
  Sender: FDA-Public Use
  Company Number: GB-PFIZER INC-2013173600

PATIENT
  Age: 35 Year
  Sex: Female
  Weight: 68.5 kg

DRUGS (1)
  1. INLYTA [Suspect]
     Indication: METASTATIC RENAL CELL CARCINOMA
     Dosage: 5 MG, 2X/DAY
     Route: 048
     Dates: start: 201210

REACTIONS (4)
  - Hypertension [Not Recovered/Not Resolved]
  - Renal pain [Not Recovered/Not Resolved]
  - Ear discomfort [Not Recovered/Not Resolved]
  - Dysphonia [Not Recovered/Not Resolved]
